FAERS Safety Report 8658101 (Version 3)
Quarter: 2012Q4

REPORT INFORMATION
  Report Type: 
  Country: US (occurrence: US)
  Receive Date: 20120710
  Receipt Date: 20120917
  Transmission Date: 20130627
  Serious: No
  Sender: FDA-Public Use
  Company Number: US-PFIZER INC-2012154967

PATIENT
  Age: 47 Year
  Sex: Female
  Weight: 63.2 kg

DRUGS (6)
  1. CRIZOTINIB [Suspect]
     Indication: NON-SMALL CELL LUNG CANCER
     Dosage: 250 mg, 2x/day
     Route: 048
     Dates: start: 20100922, end: 20120517
  2. KEPPRA [Concomitant]
     Indication: CONVULSION PROPHYLAXIS
     Dosage: 500 mg, 2x/day
     Route: 048
     Dates: start: 20120404
  3. BIOTIN [Concomitant]
     Indication: PROPHYLAXIS
     Dosage: 300 ug, 1x/day
     Route: 048
     Dates: start: 200909
  4. MELATONIN [Concomitant]
     Indication: SLEEP DISORDER
     Dosage: 500 ug, UNK
     Route: 048
     Dates: start: 20110611
  5. XANAX [Concomitant]
     Indication: ANXIETY
     Dosage: 0.5 mg, UNK
     Route: 048
     Dates: start: 200810
  6. OXYCODONE [Concomitant]
     Indication: PAIN
     Dosage: 5 mg, UNK
     Route: 048
     Dates: start: 20111210

REACTIONS (1)
  - Pain [Recovered/Resolved with Sequelae]
